FAERS Safety Report 8614163-5 (Version None)
Quarter: 2012Q3

REPORT INFORMATION
  Report Type: 
  Country: None (occurrence: None)
  Receive Date: 20120823
  Receipt Date: 20120814
  Transmission Date: 20120928
  Serious: Yes (Hospitalization, Other)
  Sender: FDA-Public Use
  Company Number: TW-JNJFOC-20120803046

PATIENT
  Sex: Male

DRUGS (2)
  1. SIMPONI [Suspect]
     Route: 058
     Dates: start: 20120803
  2. SIMPONI [Suspect]
     Indication: RHEUMATOID ARTHRITIS
     Route: 058
     Dates: start: 20120706

REACTIONS (1)
  - BLOOD CREATININE INCREASED [None]
